FAERS Safety Report 11393984 (Version 1)
Quarter: 2015Q3

REPORT INFORMATION
  Report Type: Spontaneous
  Country: US (occurrence: US)
  Receive Date: 20150819
  Receipt Date: 20150819
  Transmission Date: 20151125
  Serious: No
  Sender: FDA-Public Use
  Company Number: US-ASTRAZENECA-2015SE77098

PATIENT
  Age: 907 Month
  Sex: Female
  Weight: 52.6 kg

DRUGS (8)
  1. CRESTOR [Suspect]
     Active Substance: ROSUVASTATIN CALCIUM
     Indication: BLOOD CHOLESTEROL ABNORMAL
     Dosage: BREAKING THE CRESTOR 5MG IN HALF
     Route: 048
     Dates: start: 201505
  2. CRESTOR [Suspect]
     Active Substance: ROSUVASTATIN CALCIUM
     Indication: CARDIOVASCULAR EVENT PROPHYLAXIS
     Route: 048
     Dates: start: 201505
  3. VITAMIN B12 [Concomitant]
     Active Substance: CYANOCOBALAMIN
     Indication: PERNICIOUS ANAEMIA
     Dates: start: 1988
  4. CRESTOR [Suspect]
     Active Substance: ROSUVASTATIN CALCIUM
     Indication: BLOOD CHOLESTEROL ABNORMAL
     Route: 048
     Dates: start: 201505
  5. BABY ASPIRIN [Concomitant]
     Active Substance: ASPIRIN
     Indication: UNHEALTHY DIET
  6. CRESTOR [Suspect]
     Active Substance: ROSUVASTATIN CALCIUM
     Indication: CARDIOVASCULAR EVENT PROPHYLAXIS
     Dosage: BREAKING THE CRESTOR 5MG IN HALF
     Route: 048
     Dates: start: 201505
  7. LIPITOR [Suspect]
     Active Substance: ATORVASTATIN CALCIUM
     Route: 065
  8. MIRALAX [Concomitant]
     Active Substance: POLYETHYLENE GLYCOL 3350
     Indication: LAXATIVE SUPPORTIVE CARE

REACTIONS (3)
  - Intentional product misuse [Unknown]
  - Blood iron increased [Unknown]
  - Muscle spasms [Recovered/Resolved]

NARRATIVE: CASE EVENT DATE: 201505
